FAERS Safety Report 8120473-0 (Version None)
Quarter: 2012Q1

REPORT INFORMATION
  Report Type: 
  Country: None (occurrence: None)
  Receive Date: 20120207
  Receipt Date: 20120202
  Transmission Date: 20120608
  Serious: Yes (Hospitalization)
  Sender: FDA-Public Use
  Company Number: US-B.I. PHARMACEUTICALS,INC./RIDGEFIELD-2011-BP-15677BP

PATIENT
  Sex: Female

DRUGS (17)
  1. PRADAXA [Suspect]
     Dosage: 300 MG
     Route: 048
     Dates: start: 20110501
  2. VITAMIN B6 [Concomitant]
     Indication: ROUTINE HEALTH MAINTENANCE
  3. TRAMADOL HCL [Concomitant]
  4. OMEPRAZOLE [Concomitant]
     Indication: ABDOMINAL DISCOMFORT
     Dosage: 20 MG
     Route: 048
  5. DIOVAN HCT [Concomitant]
     Indication: HYPERTENSION
     Route: 048
  6. MULTI-VITAMIN [Concomitant]
     Indication: SUPPLEMENTATION THERAPY
     Route: 048
  7. VITAMIN D [Concomitant]
     Indication: SUPPLEMENTATION THERAPY
     Dosage: 1000 MG
     Route: 048
  8. ENABLEX [Concomitant]
     Indication: BLADDER DISORDER
     Dosage: 15 MG
     Route: 048
  9. CALCIUM [Concomitant]
     Indication: SUPPLEMENTATION THERAPY
     Dosage: 1200 MG
     Route: 048
  10. VITAMIN B6 [Concomitant]
     Indication: SUPPLEMENTATION THERAPY
     Dosage: 200 MG
     Route: 048
  11. PRADAXA [Suspect]
     Indication: ATRIAL FIBRILLATION
     Dosage: 300 MG
     Route: 048
     Dates: start: 20110101, end: 20110501
  12. AMLODIPINE [Concomitant]
     Indication: HYPERTENSION
     Dosage: 5 MG
     Route: 048
  13. ASPIRIN [Concomitant]
     Indication: PROPHYLAXIS
     Dosage: 81 MG
     Route: 048
  14. CALCIUM [Concomitant]
     Indication: ROUTINE HEALTH MAINTENANCE
  15. VITAMIN D [Concomitant]
     Indication: ROUTINE HEALTH MAINTENANCE
     Dosage: 1000 U
     Route: 048
  16. PRADAXA [Suspect]
     Dosage: 150 MG
     Route: 048
     Dates: start: 20111121
  17. ASPIRIN [Concomitant]
     Indication: ROUTINE HEALTH MAINTENANCE

REACTIONS (4)
  - FALL [None]
  - DYSPEPSIA [None]
  - HIP FRACTURE [None]
  - EPISTAXIS [None]
